FAERS Safety Report 5061275-1 (Version None)
Quarter: 2006Q3

REPORT INFORMATION
  Report Type: 
  Country: None (occurrence: None)
  Receive Date: 20060719
  Receipt Date: 20060719
  Transmission Date: 20061208
  Serious: Yes (Hospitalization)
  Sender: FDA-Public Use
  Company Number: None

PATIENT
  Age: 63 Year
  Sex: Male

DRUGS (8)
  1. ETODOLAC [Suspect]
     Indication: PAIN
     Dosage: 300 MG BID
     Dates: start: 20040301
  2. PLAVIX [Concomitant]
  3. ZOCOR [Concomitant]
  4. METFORMIN [Concomitant]
  5. TRAZODONE HCL [Concomitant]
  6. CLONAZEPAM [Concomitant]
  7. VENLAFAXINE HCL [Concomitant]
  8. LISINOPRIL [Concomitant]

REACTIONS (2)
  - GASTRIC ULCER [None]
  - GASTROINTESTINAL HAEMORRHAGE [None]
